FAERS Safety Report 7420164-5 (Version None)
Quarter: 2011Q2

REPORT INFORMATION
  Report Type: 
  Country: None (occurrence: None)
  Receive Date: 20110418
  Receipt Date: 20110408
  Transmission Date: 20111010
  Serious: Yes (Life-Threatening, Hospitalization)
  Sender: FDA-Public Use
  Company Number: DE-PFIZER INC-2011080390

PATIENT
  Age: 53 Year
  Sex: Male

DRUGS (1)
  1. ARGATROBAN [Suspect]
     Indication: HEPARIN-INDUCED THROMBOCYTOPENIA
     Dosage: 50 MG, 1X/DAY
     Route: 042
     Dates: start: 20101104, end: 20101121

REACTIONS (5)
  - RHABDOMYOLYSIS [None]
  - SEPSIS [None]
  - MYOPATHY [None]
  - RENAL FAILURE ACUTE [None]
  - PYREXIA [None]
